FAERS Safety Report 13187350 (Version 1)
Quarter: 2017Q1

REPORT INFORMATION
  Report Type: Spontaneous
  Country: US (occurrence: US)
  Receive Date: 20170206
  Receipt Date: 20170206
  Transmission Date: 20170428
  Serious: No
  Sender: FDA-Public Use
  Company Number: US-TEVA-731023ACC

PATIENT
  Age: 53 Year
  Sex: Female

DRUGS (14)
  1. COPAXONE [Suspect]
     Active Substance: GLATIRAMER ACETATE
     Indication: MULTIPLE SCLEROSIS
     Route: 058
     Dates: start: 20140701
  2. MELOXICAM. [Concomitant]
     Active Substance: MELOXICAM
  3. LEVOFLOXACIN. [Concomitant]
     Active Substance: LEVOFLOXACIN
  4. VITAMIN D [Concomitant]
     Active Substance: CHOLECALCIFEROL
  5. TIZANIDINE. [Concomitant]
     Active Substance: TIZANIDINE
  6. CRAN CONC [Concomitant]
  7. ADVAR DISKU AER [Concomitant]
     Dosage: 250/50
  8. PRAVASTATIN. [Concomitant]
     Active Substance: PRAVASTATIN
  9. GABAPENTIN. [Concomitant]
     Active Substance: GABAPENTIN
  10. LEVOTHYROXIN [Concomitant]
     Active Substance: LEVOTHYROXINE
  11. IRON [Concomitant]
     Active Substance: IRON
  12. MULTIVITAMIN, MINERALS [Concomitant]
  13. PROAIR RESPI AER [Concomitant]
  14. METHENAM MAN [Concomitant]

REACTIONS (2)
  - Pyrexia [Recovering/Resolving]
  - Sinusitis [Recovering/Resolving]

NARRATIVE: CASE EVENT DATE: 20161106
